FAERS Safety Report 5283322-4 (Version None)
Quarter: 2007Q1

REPORT INFORMATION
  Report Type: 
  Country: None (occurrence: None)
  Receive Date: 20061226
  Receipt Date: 20061013
  Transmission Date: 20070707
  Serious: No
  Sender: FDA-Public Use
  Company Number: PHEH2006US12914

PATIENT
  Age: 78 Year
  Sex: Female

DRUGS (6)
  1. ENABLEX [Suspect]
     Indication: URINARY INCONTINENCE
     Dosage: 7.5 MG, QD, ORAL
     Route: 048
     Dates: start: 20061001
  2. DIOVAN HCT [Concomitant]
  3. TOPROL-XL [Concomitant]
  4. NIASPAN [Concomitant]
  5. DDAVP [Concomitant]
  6. VITAMINS (NO INGREDIENTS/SUBSTANCES) [Concomitant]

REACTIONS (1)
  - CONSTIPATION [None]
